FAERS Safety Report 15750468 (Version 1)
Quarter: 2018Q4

REPORT INFORMATION
  Report Type: Spontaneous
  Country: US (occurrence: US)
  Receive Date: 20181221
  Receipt Date: 20181221
  Transmission Date: 20190205
  Serious: No
  Sender: FDA-Public Use
  Company Number: US-009507513-1812USA007061

PATIENT
  Age: 35 Year
  Sex: Female
  Weight: 132.43 kg

DRUGS (1)
  1. NEXPLANON [Suspect]
     Active Substance: ETONOGESTREL
     Indication: CONTRACEPTION
     Dosage: 1 ROD EVERY 3 YEARS
     Route: 059
     Dates: start: 20181206, end: 20181206

REACTIONS (2)
  - Device expulsion [Recovered/Resolved]
  - Implant site bruising [Recovered/Resolved]

NARRATIVE: CASE EVENT DATE: 20181206
